FAERS Safety Report 6418391-9 (Version None)
Quarter: 2009Q4

REPORT INFORMATION
  Report Type: 
  Country: None (occurrence: None)
  Receive Date: 20091026
  Receipt Date: 20091013
  Transmission Date: 20100525
  Serious: Yes (Other)
  Sender: FDA-Public Use
  Company Number: ADR37352009

PATIENT
  Age: 57 Year
  Sex: Male

DRUGS (3)
  1. SIMVASTATIN [Suspect]
     Indication: HYPERLIPIDAEMIA
     Dosage: 40 MG ORAL USE
     Route: 048
     Dates: start: 20070413
  2. BENDROFLUMETHIAZIDE [Concomitant]
  3. AMLODIPINE [Concomitant]

REACTIONS (2)
  - DYSPEPSIA [None]
  - GASTRIC ULCER [None]
